FAERS Safety Report 25674067 (Version 1)
Quarter: 2025Q3

REPORT INFORMATION
  Report Type: Spontaneous
  Country: EU (occurrence: EU)
  Receive Date: 20250813
  Receipt Date: 20250813
  Transmission Date: 20251020
  Serious: Yes (Other)
  Sender: AUROBINDO
  Company Number: EU-AFSSAPS-TO2025001182

PATIENT
  Age: 27 Year
  Sex: Male

DRUGS (1)
  1. METRONIDAZOLE [Suspect]
     Active Substance: METRONIDAZOLE
     Indication: Osteitis
     Route: 065

REACTIONS (2)
  - Erythema multiforme [Recovered/Resolved]
  - Pruritus [Recovered/Resolved]
